FAERS Safety Report 14304618 (Version 1)
Quarter: 2017Q4

REPORT INFORMATION
  Report Type: Spontaneous
  Country: DE (occurrence: DE)
  Receive Date: 20171219
  Receipt Date: 20171219
  Transmission Date: 20180321
  Serious: Yes (Death)
  Sender: FDA-Public Use
  Company Number: DE-OTSUKA-DJ20072348

PATIENT
  Age: 31 Year
  Sex: Male
  Weight: 100 kg

DRUGS (7)
  1. DIAZEPAM. [Suspect]
     Active Substance: DIAZEPAM
     Indication: TENSION
     Dosage: 30 MG, UNK
     Route: 048
     Dates: start: 20070914, end: 20070918
  2. ABILIFY [Suspect]
     Active Substance: ARIPIPRAZOLE
     Indication: PRODUCT USED FOR UNKNOWN INDICATION
     Dosage: 15 MG, UNK
     Route: 048
     Dates: start: 20070913, end: 20070917
  3. PERAZINE [Suspect]
     Active Substance: PERAZINE
     Indication: PSYCHOTIC DISORDER
     Dosage: 350 MG, UNK
     Route: 048
     Dates: start: 20070920, end: 20070925
  4. PERAZINE [Suspect]
     Active Substance: PERAZINE
     Indication: DELUSIONAL DISORDER, PERSECUTORY TYPE
     Dosage: 150 MG, UNK
     Route: 048
     Dates: start: 20070823, end: 20070919
  5. DIAZEPAM. [Suspect]
     Active Substance: DIAZEPAM
     Dosage: 35 MG, UNK
     Route: 048
     Dates: start: 20070919, end: 20070925
  6. ABILIFY [Suspect]
     Active Substance: ARIPIPRAZOLE
     Dosage: 30 MG, UNK
     Route: 048
     Dates: start: 20070918, end: 20070925
  7. ALLOPURINOL. [Suspect]
     Active Substance: ALLOPURINOL
     Indication: GOUT
     Dosage: 100 MG, UNK
     Route: 048
     Dates: start: 20070827, end: 20070925

REACTIONS (1)
  - Sudden cardiac death [Fatal]

NARRATIVE: CASE EVENT DATE: 20070925
